FAERS Safety Report 16178454 (Version 3)
Quarter: 2019Q2

REPORT INFORMATION
  Report Type: Spontaneous
  Country: DE (occurrence: DE)
  Receive Date: 20190410
  Receipt Date: 20190615
  Transmission Date: 20190711
  Serious: Yes (Other)
  Sender: FDA-Public Use
  Company Number: DE-AUROBINDO-AUR-APL-2019-018369

PATIENT

DRUGS (9)
  1. VIACORAM [Concomitant]
     Active Substance: AMLODIPINE BESYLATE\PERINDOPRIL ARGININE
     Indication: HYPERTENSION
     Dosage: UNK, (7 MG/ 5 MG)
     Route: 065
     Dates: start: 20170401
  2. KALINOR [Concomitant]
     Indication: HYPERTENSION
     Dosage: 1.56 GRAM, DAILY (1.56 G, QD)
     Route: 048
     Dates: start: 20161208
  3. RAMIPRIL. [Suspect]
     Active Substance: RAMIPRIL
     Dosage: 10 MILLIGRAM, DAILY (10 MG, QD)
     Route: 048
     Dates: start: 20161207, end: 20170401
  4. RAMIPRIL. [Suspect]
     Active Substance: RAMIPRIL
     Dosage: 2.5 MILLIGRAM, ONCE A DAY
     Route: 048
     Dates: start: 20160822, end: 20160904
  5. VIACTIV [Concomitant]
     Active Substance: CALCIUM\VITAMIN D\VITAMIN K5
     Indication: HYPERTENSION
     Dosage: 7MG/5MG, UNK
     Route: 065
     Dates: start: 20170401
  6. RAMIPRIL. [Suspect]
     Active Substance: RAMIPRIL
     Dosage: 5 MILLIGRAM, DAILY (5 MG, QD)
     Route: 048
     Dates: start: 20160905, end: 20161206
  7. MIRTAZAPINE. [Concomitant]
     Active Substance: MIRTAZAPINE
     Indication: SLEEP DISORDER
     Dosage: 15 MILLIGRAM (15 MG, UNK)
     Route: 048
  8. RAMIPRIL. [Suspect]
     Active Substance: RAMIPRIL
     Indication: HYPERTENSION
     Dosage: 0.5 UNK (0.5 MG, QD (5 MG) (?-0-0) )
     Route: 065
     Dates: start: 20160822, end: 20160904
  9. GILENYA [Suspect]
     Active Substance: FINGOLIMOD HYDROCHLORIDE
     Indication: MULTIPLE SCLEROSIS
     Dosage: 0.5 MILLIGRAM, DAILY (0.5 MG, QD )
     Route: 048
     Dates: start: 20160616

REACTIONS (4)
  - Central nervous system lesion [Unknown]
  - Multiple sclerosis relapse [Recovered/Resolved]
  - Hypokalaemia [Unknown]
  - Hyperkalaemia [Unknown]
